FAERS Safety Report 9624530 (Version 2)
Quarter: 2013Q4

REPORT INFORMATION
  Report Type: Spontaneous
  Country: FR (occurrence: FR)
  Receive Date: 20131015
  Receipt Date: 20131031
  Transmission Date: 20140711
  Serious: No
  Sender: FDA-Public Use
  Company Number: FR-JNJFOC-20131005614

PATIENT
  Age: 45 Year
  Sex: Male
  Weight: 86 kg

DRUGS (2)
  1. STELARA [Suspect]
     Indication: PSORIASIS
     Route: 058
     Dates: start: 2012
  2. STELARA [Suspect]
     Indication: PSORIASIS
     Dosage: INITIATED SINCE 1 AND HALF YEAR
     Route: 058
     Dates: start: 20120710

REACTIONS (1)
  - Weight increased [Not Recovered/Not Resolved]
